FAERS Safety Report 13033541 (Version 1)
Quarter: 2016Q4

REPORT INFORMATION
  Report Type: Spontaneous
  Country: US (occurrence: US)
  Receive Date: 20161215
  Receipt Date: 20161215
  Transmission Date: 20170207
  Serious: No
  Sender: FDA-Public Use
  Company Number: None

PATIENT
  Age: 67 Year
  Sex: Female

DRUGS (2)
  1. RIFAMPIN. [Suspect]
     Active Substance: RIFAMPIN
     Indication: PNEUMONIA
     Route: 042
     Dates: start: 20161109, end: 20161128
  2. RIFAMPIN. [Suspect]
     Active Substance: RIFAMPIN
     Indication: MYCOBACTERIUM AVIUM COMPLEX INFECTION
     Route: 042
     Dates: start: 20161109, end: 20161128

REACTIONS (2)
  - Rash [None]
  - Dyspnoea [None]

NARRATIVE: CASE EVENT DATE: 20161128
